FAERS Safety Report 23475696 (Version 1)
Quarter: 2024Q1

REPORT INFORMATION
  Report Type: Report from Study
  Country: US (occurrence: US)
  Receive Date: 20240204
  Receipt Date: 20240204
  Transmission Date: 20240409
  Serious: No
  Sender: FDA-Public Use
  Company Number: US-EXELIXIS-CABO-23060742

PATIENT
  Age: 52 Year
  Sex: Male

DRUGS (9)
  1. CABOMETYX [Suspect]
     Active Substance: CABOZANTINIB S-MALATE
     Indication: Thyroid cancer
     Dosage: 40 MG
     Dates: start: 20230124, end: 20230208
  2. CABOMETYX [Suspect]
     Active Substance: CABOZANTINIB S-MALATE
     Dosage: 40 MG, 2 DAYS ON AND ONE DAY OFF
     Dates: start: 202302
  3. CALCITRIOL [Concomitant]
     Active Substance: CALCITRIOL
  4. ALBUTEROL [Concomitant]
     Active Substance: ALBUTEROL
  5. ALLOPURINOL [Concomitant]
     Active Substance: ALLOPURINOL
  6. METOPROLOL TARTRATE [Concomitant]
     Active Substance: METOPROLOL TARTRATE
  7. PRILOSEC [Concomitant]
     Active Substance: OMEPRAZOLE MAGNESIUM
  8. SYNTHROID [Concomitant]
     Active Substance: LEVOTHYROXINE SODIUM
  9. TUMS [Concomitant]
     Active Substance: CALCIUM CARBONATE

REACTIONS (7)
  - Liver function test abnormal [Recovered/Resolved]
  - Glossitis [Not Recovered/Not Resolved]
  - Burning sensation [Not Recovered/Not Resolved]
  - Diarrhoea [Not Recovered/Not Resolved]
  - Pain in extremity [Not Recovered/Not Resolved]
  - Blood calcium decreased [Recovered/Resolved]
  - Inappropriate schedule of product administration [Unknown]

NARRATIVE: CASE EVENT DATE: 20230201
